FAERS Safety Report 7855740-9 (Version None)
Quarter: 2011Q4

REPORT INFORMATION
  Report Type: 
  Country: None (occurrence: None)
  Receive Date: 20111026
  Receipt Date: 20111024
  Transmission Date: 20120403
  Serious: Yes (Hospitalization)
  Sender: FDA-Public Use
  Company Number: BE-ABBOTT-11P-013-0842038-00

PATIENT
  Sex: Female

DRUGS (3)
  1. HUMIRA [Suspect]
     Indication: ANKYLOSING SPONDYLITIS
     Route: 058
     Dates: start: 20070619, end: 20110609
  2. MOTIFENE [Concomitant]
     Indication: ARTHRITIS
     Dosage: 1 TAB DAILY AS NEEDED
  3. HUMIRA [Suspect]

REACTIONS (4)
  - CROHN'S DISEASE [None]
  - INFLUENZA [None]
  - VIRAL INFECTION [None]
  - OSTEOARTHRITIS [None]
